FAERS Safety Report 6858871-5 (Version None)
Quarter: 2010Q3

REPORT INFORMATION
  Report Type: 
  Country: None (occurrence: None)
  Receive Date: 20100719
  Receipt Date: 20080417
  Transmission Date: 20110219
  Serious: No
  Sender: FDA-Public Use
  Company Number: US-PFIZER INC-2008015328

PATIENT
  Sex: Female
  Weight: 99.8 kg

DRUGS (2)
  1. CHANTIX [Suspect]
     Indication: SMOKING CESSATION THERAPY
     Dates: start: 20080101
  2. PAXIL [Concomitant]

REACTIONS (7)
  - EPISTAXIS [None]
  - NAUSEA [None]
  - PRODUCTIVE COUGH [None]
  - RASH [None]
  - RHINORRHOEA [None]
  - TREMOR [None]
  - URTICARIA [None]
